FAERS Safety Report 13124113 (Version 3)
Quarter: 2017Q1

REPORT INFORMATION
  Report Type: Report from Study
  Country: US (occurrence: US)
  Receive Date: 20170118
  Receipt Date: 20170308
  Transmission Date: 20170428
  Serious: No
  Sender: FDA-Public Use
  Company Number: PHEH2017US001386

PATIENT
  Sex: Female

DRUGS (1)
  1. AFINITOR [Suspect]
     Active Substance: EVEROLIMUS
     Indication: ANGIOMYOLIPOMA
     Dosage: 7.5 MG, UNK (7.5 MG WEEKDAYS AND 10 MG WEEKENDS)
     Route: 048
     Dates: start: 20150320

REACTIONS (3)
  - Renal disorder [Recovering/Resolving]
  - Eye disorder [Unknown]
  - Renal haematoma [Unknown]
